FAERS Safety Report 7888387-9 (Version None)
Quarter: 2011Q4

REPORT INFORMATION
  Report Type: 
  Country: None (occurrence: None)
  Receive Date: 20111103
  Receipt Date: 20111102
  Transmission Date: 20120403
  Serious: Yes (Death)
  Sender: FDA-Public Use
  Company Number: HK-PFIZER INC-2011268585

PATIENT
  Age: 72 Year
  Sex: Male

DRUGS (1)
  1. NORVASC [Suspect]
     Dosage: UNK, 1X/DAY
     Route: 048

REACTIONS (1)
  - DEATH [None]
